FAERS Safety Report 17888087 (Version 1)
Quarter: 2020Q2

REPORT INFORMATION
  Report Type: Report from Study
  Country: US (occurrence: US)
  Receive Date: 20200612
  Receipt Date: 20200612
  Transmission Date: 20200714
  Serious: Yes (Hospitalization)
  Sender: FDA-Public Use
  Company Number: US-DOVA PHARMACEUTICALS INC.-DOV-000545

PATIENT
  Age: 78 Year
  Sex: Male
  Weight: 92.97 kg

DRUGS (1)
  1. DOPTELET [Suspect]
     Active Substance: AVATROMBOPAG MALEATE
     Indication: NEOPLASM SKIN
     Dosage: 20 MG, QD
     Route: 048
     Dates: start: 20200519

REACTIONS (3)
  - Platelet count abnormal [Unknown]
  - Product use in unapproved indication [Unknown]
  - Lung disorder [Unknown]

NARRATIVE: CASE EVENT DATE: 2020
